FAERS Safety Report 4940024-9 (Version None)
Quarter: 2006Q1

REPORT INFORMATION
  Report Type: 
  Country: None (occurrence: None)
  Receive Date: 20060310
  Receipt Date: 20060201
  Transmission Date: 20060701
  Serious: Yes (Hospitalization)
  Sender: FDA-Public Use
  Company Number: US-BRISTOL-MYERS SQUIBB COMPANY-13267869

PATIENT
  Age: 70 Year
  Sex: Male

DRUGS (5)
  1. VINFLUNINE [Suspect]
     Indication: NEOPLASM MALIGNANT
     Route: 042
     Dates: start: 20060125, end: 20060125
  2. KETOCONAZOLE [Suspect]
     Indication: NEOPLASM MALIGNANT
     Route: 048
     Dates: start: 20060103
  3. DIOVAN [Concomitant]
     Dates: start: 20030101
  4. DURAGESIC-100 [Concomitant]
     Dates: start: 20051225
  5. AMBIEN [Concomitant]
     Dates: start: 20051223

REACTIONS (7)
  - GASTRITIS [None]
  - ILEUS [None]
  - MALIGNANT HYPERTENSION [None]
  - NEUTROPENIA [None]
  - SEPTIC SHOCK [None]
  - THROMBOCYTOPENIA [None]
  - UROSEPSIS [None]
